FAERS Safety Report 16744782 (Version 2)
Quarter: 2019Q3

REPORT INFORMATION
  Report Type: Spontaneous
  Country: US (occurrence: US)
  Receive Date: 20190827
  Receipt Date: 20190925
  Transmission Date: 20191005
  Serious: No
  Sender: FDA-Public Use
  Company Number: US-ASTRAZENECA-2019SF11078

PATIENT
  Age: 60 Year
  Sex: Male
  Weight: 129.3 kg

DRUGS (1)
  1. BYDUREON [Suspect]
     Active Substance: EXENATIDE
     Indication: TYPE 2 DIABETES MELLITUS
     Route: 058
     Dates: start: 2015

REACTIONS (8)
  - Haematoma [Recovered/Resolved]
  - Pain [Recovered/Resolved]
  - Injection site haemorrhage [Recovered/Resolved]
  - Injection site extravasation [Recovered/Resolved]
  - Haemorrhage [Recovered/Resolved]
  - Injection site mass [Recovering/Resolving]
  - Device issue [Unknown]
  - Wrong technique in device usage process [Unknown]

NARRATIVE: CASE EVENT DATE: 2015
